FAERS Safety Report 8560298-5 (Version None)
Quarter: 2012Q3

REPORT INFORMATION
  Report Type: 
  Country: None (occurrence: None)
  Receive Date: 20120802
  Receipt Date: 20120719
  Transmission Date: 20120928
  Serious: Yes (Other)
  Sender: FDA-Public Use
  Company Number: AT-ELI_LILLY_AND_COMPANY-AT201207006177

PATIENT
  Sex: Male

DRUGS (3)
  1. CYMBALTA [Suspect]
     Indication: DEPRESSION
     Dosage: 30MG, UNK
     Dates: start: 20120713
  2. CYMBALTA [Suspect]
     Dosage: 60MG, UNK
     Dates: end: 20120719
  3. TRAZODONE HCL [Concomitant]

REACTIONS (2)
  - YELLOW SKIN [None]
  - OCULAR ICTERUS [None]
